FAERS Safety Report 7995832-7 (Version None)
Quarter: 2011Q4

REPORT INFORMATION
  Report Type: 
  Country: None (occurrence: None)
  Receive Date: 20111220
  Receipt Date: 20111216
  Transmission Date: 20120403
  Serious: Yes (Hospitalization)
  Sender: FDA-Public Use
  Company Number: BR-ABBOTT-11P-020-0884159-00

PATIENT
  Sex: Female
  Weight: 48 kg

DRUGS (9)
  1. CYCLOBENZAPRINE [Concomitant]
     Indication: BONE PAIN
     Dosage: 1 TABLET DAILY
     Route: 048
     Dates: start: 20110701
  2. HUMIRA [Suspect]
     Indication: ANKYLOSING SPONDYLITIS
     Route: 058
     Dates: start: 20100701
  3. AMITRIPTYLINE HCL [Concomitant]
     Indication: BLOOD PRESSURE ABNORMAL
     Dosage: 4 TABLETS PER DAY
     Route: 048
     Dates: start: 20110801
  4. GABAPENTIN [Concomitant]
     Indication: BONE PAIN
     Route: 048
     Dates: start: 20110101
  5. METHOTREXATE [Concomitant]
     Indication: MUSCULOSKELETAL PAIN
     Dosage: 5 TABS ON SAT AND 5 TABS ON SUN
     Route: 048
  6. OMEPRAZOLE [Concomitant]
     Indication: GASTRIC DISORDER
     Dosage: 1 TABLET DAILY
     Route: 048
     Dates: start: 20100101
  7. SERTRALINE HYDROCHLORIDE [Concomitant]
     Indication: PRODUCT USED FOR UNKNOWN INDICATION
     Dosage: 4 TABLETS PER DAY
     Route: 048
     Dates: start: 20110801
  8. FOLIC ACID [Concomitant]
     Indication: GASTRIC DISORDER
     Dosage: 2 TABLETS ON MONDAYS
     Route: 048
  9. FOLIC ACID [Concomitant]
     Indication: PROPHYLAXIS

REACTIONS (12)
  - HOSPITALISATION [None]
  - RESTING TREMOR [None]
  - PAIN IN EXTREMITY [None]
  - DEPRESSION [None]
  - ARTHRALGIA [None]
  - INSOMNIA [None]
  - THROAT IRRITATION [None]
  - ABDOMINAL PAIN UPPER [None]
  - PYREXIA [None]
  - ROAD TRAFFIC ACCIDENT [None]
  - MUSCULOSKELETAL STIFFNESS [None]
  - OVARIAN CYST [None]
